FAERS Safety Report 9931790 (Version 1)
Quarter: 2014Q1

REPORT INFORMATION
  Report Type: Spontaneous
  Country: US (occurrence: None)
  Receive Date: 20140227
  Receipt Date: 20140227
  Transmission Date: 20141002
  Serious: No
  Sender: FDA-Public Use
  Company Number: None

PATIENT
  Age: 88 Year
  Sex: Male
  Weight: 77.11 kg

DRUGS (2)
  1. ELIQUIS [Suspect]
     Indication: CEREBROVASCULAR ACCIDENT
     Dosage: 1 PILL TWICE DAILY
     Dates: start: 20131205, end: 20140226
  2. ELIQUIS [Suspect]
     Indication: ANTICOAGULANT THERAPY
     Dosage: 1 PILL TWICE DAILY
     Dates: start: 20131205, end: 20140226

REACTIONS (2)
  - Rash pruritic [None]
  - Rash [None]
